FAERS Safety Report 6426742-4 (Version None)
Quarter: 2009Q4

REPORT INFORMATION
  Report Type: 
  Country: None (occurrence: None)
  Receive Date: 20091104
  Receipt Date: 20091102
  Transmission Date: 20100525
  Serious: Yes (Other)
  Sender: FDA-Public Use
  Company Number: US-TEVA-213977USA

PATIENT
  Age: 38 Year
  Sex: Male

DRUGS (2)
  1. GABAPENTIN [Suspect]
     Indication: HEADACHE
  2. GABAPENTIN [Suspect]
     Indication: ANXIETY

REACTIONS (3)
  - DELIRIUM [None]
  - DRUG DEPENDENCE [None]
  - WITHDRAWAL SYNDROME [None]
